FAERS Safety Report 8248124-5 (Version None)
Quarter: 2012Q1

REPORT INFORMATION
  Report Type: 
  Country: None (occurrence: None)
  Receive Date: 20120330
  Receipt Date: 20120328
  Transmission Date: 20120608
  Serious: Yes (Hospitalization)
  Sender: FDA-Public Use
  Company Number: IT-BAYER-2012-030505

PATIENT
  Age: 74 Year
  Sex: Male

DRUGS (3)
  1. RAMIPRIL [Concomitant]
     Dosage: DAILY DOSE 2.5 MG
     Route: 048
  2. ASPIRIN [Suspect]
     Dosage: 100 MG, QD
     Route: 048
     Dates: start: 20110201, end: 20120208
  3. SIMVASTATIN [Concomitant]
     Dosage: DAILY DOSE 10 MG
     Route: 048

REACTIONS (2)
  - SUBARACHNOID HAEMORRHAGE [None]
  - HEADACHE [None]
